FAERS Safety Report 6921717-0 (Version None)
Quarter: 2010Q3

REPORT INFORMATION
  Report Type: 
  Country: None (occurrence: None)
  Receive Date: 20100805
  Receipt Date: 20090928
  Transmission Date: 20110219
  Serious: Yes (Other)
  Sender: FDA-Public Use
  Company Number: 2009255463

PATIENT
  Sex: Female

DRUGS (3)
  1. CAMPTOSAR [Suspect]
     Indication: COLORECTAL CANCER
     Dosage: 270 MG/5ML, PER 2 WEEKS
     Dates: start: 20080101, end: 20090101
  2. ATIVIAN (LORACEPAM) [Concomitant]
  3. KYTRIL [Concomitant]

REACTIONS (1)
  - ABDOMINAL PAIN [None]
